FAERS Safety Report 4737395-5 (Version None)
Quarter: 2005Q3

REPORT INFORMATION
  Report Type: 
  Country: None (occurrence: None)
  Receive Date: 20050805
  Receipt Date: 20050607
  Transmission Date: 20060218
  Serious: Yes (Other)
  Sender: FDA-Public Use
  Company Number: 2005089289

PATIENT
  Sex: Female

DRUGS (2)
  1. DETROL LA [Suspect]
     Indication: ILL-DEFINED DISORDER
  2. HYDROCORTISONE [Concomitant]

REACTIONS (4)
  - PAIN [None]
  - PRURITUS [None]
  - SURGERY [None]
  - URINARY INCONTINENCE [None]
